FAERS Safety Report 11192410 (Version 2)
Quarter: 2015Q3

REPORT INFORMATION
  Report Type: Report from Study
  Country: BR (occurrence: BR)
  Receive Date: 20150616
  Receipt Date: 20150929
  Transmission Date: 20151125
  Serious: Yes (Death, Other)
  Sender: FDA-Public Use
  Company Number: BR-SHIRE-BR201505389

PATIENT
  Age: 23 Year
  Sex: Male

DRUGS (2)
  1. IDURSULFASE [Suspect]
     Active Substance: IDURSULFASE
     Dosage: UNK UNK, UNKNOWN
     Route: 041
     Dates: start: 20071003
  2. IDURSULFASE [Suspect]
     Active Substance: IDURSULFASE
     Indication: MUCOPOLYSACCHARIDOSIS II
     Dosage: UNK, 1X/WEEK
     Route: 041
     Dates: start: 20120515

REACTIONS (1)
  - Death [Fatal]

NARRATIVE: CASE EVENT DATE: 20150511
